FAERS Safety Report 25363536 (Version 1)
Quarter: 2025Q2

REPORT INFORMATION
  Report Type: Spontaneous
  Country: US (occurrence: None)
  Receive Date: 20250527
  Receipt Date: 20250527
  Transmission Date: 20250716
  Serious: Yes (Other)
  Sender: FDA-CTU
  Company Number: None

PATIENT
  Sex: Female

DRUGS (4)
  1. TERIFLUNOMIDE [Suspect]
     Active Substance: TERIFLUNOMIDE
     Indication: Multiple sclerosis
     Dosage: FREQUENCY : DAILY;?
     Route: 048
     Dates: start: 20230926
  2. LESSINA TAB [Concomitant]
  3. LESSINA TAB [Concomitant]
  4. NYSTATIN SUS 1000000 [Concomitant]

REACTIONS (2)
  - Cerebrovascular accident [None]
  - Cardiac septal defect [None]
